FAERS Safety Report 4552626-2 (Version None)
Quarter: 2005Q1

REPORT INFORMATION
  Report Type: 
  Country: None (occurrence: None)
  Receive Date: 20050114
  Receipt Date: 20041221
  Transmission Date: 20050727
  Serious: Yes (Life-Threatening, Other)
  Sender: FDA-Public Use
  Company Number: US-GLAXOSMITHKLINE-A0538237A

PATIENT
  Sex: Male

DRUGS (2)
  1. IMITREX [Suspect]
     Indication: MIGRAINE
     Route: 058
     Dates: start: 20010101, end: 20010101
  2. NO CONCURRENT MEDICATION [Concomitant]

REACTIONS (1)
  - HYPERTENSION [None]
